FAERS Safety Report 8109979-8 (Version None)
Quarter: 2012Q1

REPORT INFORMATION
  Report Type: 
  Country: None (occurrence: None)
  Receive Date: 20120202
  Receipt Date: 20120123
  Transmission Date: 20120608
  Serious: No
  Sender: FDA-Public Use
  Company Number: US-AMGEN-USASP2012004930

PATIENT
  Age: 59 Year
  Sex: Female

DRUGS (1)
  1. ENBREL [Suspect]
     Indication: RHEUMATOID ARTHRITIS
     Dosage: 25 MG, 2 TIMES/WK
     Dates: start: 20000101

REACTIONS (10)
  - DYSPHONIA [None]
  - SINUSITIS [None]
  - TOOTH ABSCESS [None]
  - DIARRHOEA [None]
  - DENTAL CARIES [None]
  - ERUCTATION [None]
  - NASOPHARYNGITIS [None]
  - GINGIVAL PAIN [None]
  - OROPHARYNGEAL PAIN [None]
  - GASTROOESOPHAGEAL REFLUX DISEASE [None]
